FAERS Safety Report 24763644 (Version 1)
Quarter: 2024Q4

REPORT INFORMATION
  Report Type: Spontaneous
  Country: IT (occurrence: IT)
  Receive Date: 20241223
  Receipt Date: 20241223
  Transmission Date: 20250114
  Serious: Yes (Other)
  Sender: TEVA
  Company Number: IT-TEVA-VS-3276672

PATIENT
  Age: 14 Year
  Sex: Male

DRUGS (2)
  1. ISOTRETINOIN [Suspect]
     Active Substance: ISOTRETINOIN
     Indication: Product used for unknown indication
     Dosage: DURING LUNCH
     Route: 065
     Dates: start: 20240209
  2. ISOTRETINOIN [Suspect]
     Active Substance: ISOTRETINOIN
     Indication: Product used for unknown indication
     Dosage: DURING DINNER
     Route: 065
     Dates: start: 20240209

REACTIONS (2)
  - Ankylosing spondylitis [Unknown]
  - Sacroiliitis [Unknown]

NARRATIVE: CASE EVENT DATE: 20240826
